FAERS Safety Report 17488599 (Version 1)
Quarter: 2020Q1

REPORT INFORMATION
  Report Type: Spontaneous
  Country: CA (occurrence: CA)
  Receive Date: 20200303
  Receipt Date: 20200303
  Transmission Date: 20200409
  Serious: Yes (Hospitalization, Other)
  Sender: FDA-Public Use
  Company Number: CA-AUROBINDO-AUR-APL-2019-072802

PATIENT
  Age: 59 Year
  Sex: Female

DRUGS (22)
  1. CANDESARTAN. [Suspect]
     Active Substance: CANDESARTAN
     Indication: BLOOD PRESSURE INCREASED
     Dosage: 4 MILLIGRAM, ONCE A DAY
     Route: 065
  2. CANDESARTAN. [Suspect]
     Active Substance: CANDESARTAN
     Dosage: 8 MILLIGRAM, ONCE A DAY
     Route: 065
  3. BETAHISTINE [Concomitant]
     Active Substance: BETAHISTINE
     Indication: PRODUCT USED FOR UNKNOWN INDICATION
     Dosage: 12 MILLIGRAM
     Route: 065
  4. METOPROLOL. [Concomitant]
     Active Substance: METOPROLOL
     Dosage: 75 MILLIGRAM, TWO TIMES A DAY
     Route: 065
  5. METOPROLOL. [Concomitant]
     Active Substance: METOPROLOL
     Dosage: 100 MILLIGRAM, TWO TIMES A DAY
     Route: 065
  6. METOPROLOL. [Concomitant]
     Active Substance: METOPROLOL
     Indication: PRODUCT USED FOR UNKNOWN INDICATION
     Dosage: 12.5 MILLIGRAM, TWO TIMES A DAY
     Route: 065
  7. METOPROLOL. [Concomitant]
     Active Substance: METOPROLOL
     Dosage: 37.5 MILLIGRAM, TWO TIMES A DAY
     Route: 065
  8. CANDESARTAN. [Suspect]
     Active Substance: CANDESARTAN
     Dosage: 24 MILLIGRAM, ONCE A DAY
     Route: 065
  9. HCTZ [Suspect]
     Active Substance: HYDROCHLOROTHIAZIDE
     Dosage: UNK
     Route: 065
  10. GLICLAZIDE [Concomitant]
     Active Substance: GLICLAZIDE
     Indication: PRODUCT USED FOR UNKNOWN INDICATION
     Dosage: UNK
     Route: 065
  11. METOPROLOL. [Concomitant]
     Active Substance: METOPROLOL
     Dosage: 50 MILLIGRAM, TWO TIMES A DAY
     Route: 065
  12. HCTZ [Suspect]
     Active Substance: HYDROCHLOROTHIAZIDE
     Indication: PRODUCT USED FOR UNKNOWN INDICATION
     Dosage: 25 MILLIGRAM, ONCE A DAY
     Route: 065
  13. NAPROSYN [Concomitant]
     Active Substance: NAPROXEN
     Indication: PRODUCT USED FOR UNKNOWN INDICATION
     Dosage: UNK
     Route: 065
  14. METOPROLOL. [Concomitant]
     Active Substance: METOPROLOL
     Dosage: 25 MILLIGRAM, TWO TIMES A DAY
     Route: 048
  15. AMLODIPINE [Suspect]
     Active Substance: AMLODIPINE BESYLATE
     Indication: PRODUCT USED FOR UNKNOWN INDICATION
     Dosage: 5 MILLIGRAM, ONCE A DAY
     Route: 065
  16. CANDESARTAN TABLETS [Suspect]
     Active Substance: CANDESARTAN
     Indication: BLOOD PRESSURE INCREASED
     Dosage: 16 MILLIGRAM, ONCE A DAY
     Route: 065
  17. METFORMIN [Concomitant]
     Active Substance: METFORMIN HYDROCHLORIDE
     Dosage: 1000 MILLIGRAM, TWO TIMES A DAY
     Route: 065
  18. SANDOSTATIN [Suspect]
     Active Substance: OCTREOTIDE ACETATE
     Indication: METASTASES TO LIVER
     Dosage: UNK
     Route: 030
  19. SANDOSTATIN [Suspect]
     Active Substance: OCTREOTIDE ACETATE
     Indication: CARCINOID TUMOUR OF THE SMALL BOWEL
     Dosage: 60 MILLIGRAM,1 EVERY 1MONTH
     Route: 030
  20. METFORMIN [Concomitant]
     Active Substance: METFORMIN HYDROCHLORIDE
     Indication: PRODUCT USED FOR UNKNOWN INDICATION
     Dosage: 500 MILLIGRAM, TWO TIMES A DAY
     Route: 065
  21. METOPROLOL. [Concomitant]
     Active Substance: METOPROLOL
     Dosage: 50 MILLIGRAM, TWO TIMES A DAY
     Route: 048
  22. AMLODIPINE [Suspect]
     Active Substance: AMLODIPINE BESYLATE
     Indication: PRODUCT USED FOR UNKNOWN INDICATION
     Dosage: 2.5 MILLIGRAM, ONCE A DAY
     Route: 065

REACTIONS (79)
  - Arthritis [Not Recovered/Not Resolved]
  - Blood urine present [Not Recovered/Not Resolved]
  - Dizziness [Not Recovered/Not Resolved]
  - Groin pain [Not Recovered/Not Resolved]
  - Metastases to ovary [Not Recovered/Not Resolved]
  - Nephrolithiasis [Not Recovered/Not Resolved]
  - Peripheral swelling [Not Recovered/Not Resolved]
  - Rash papular [Not Recovered/Not Resolved]
  - Abdominal tenderness [Not Recovered/Not Resolved]
  - Anaemia [Not Recovered/Not Resolved]
  - Asthenia [Not Recovered/Not Resolved]
  - Back pain [Not Recovered/Not Resolved]
  - Haemorrhage [Not Recovered/Not Resolved]
  - Metastases to bladder [Not Recovered/Not Resolved]
  - Migraine [Not Recovered/Not Resolved]
  - Muscle tightness [Not Recovered/Not Resolved]
  - Nausea [Not Recovered/Not Resolved]
  - Palpitations [Not Recovered/Not Resolved]
  - Paraesthesia [Not Recovered/Not Resolved]
  - Polyp [Not Recovered/Not Resolved]
  - Subcutaneous haematoma [Not Recovered/Not Resolved]
  - Acne [Not Recovered/Not Resolved]
  - Diabetes mellitus [Not Recovered/Not Resolved]
  - Fatigue [Not Recovered/Not Resolved]
  - Hypomenorrhoea [Not Recovered/Not Resolved]
  - Hypothyroidism [Not Recovered/Not Resolved]
  - Muscle spasms [Not Recovered/Not Resolved]
  - Pain in extremity [Not Recovered/Not Resolved]
  - Abdominal adhesions [Not Recovered/Not Resolved]
  - Diarrhoea [Not Recovered/Not Resolved]
  - Malaise [Not Recovered/Not Resolved]
  - Pyrexia [Not Recovered/Not Resolved]
  - Second primary malignancy [Not Recovered/Not Resolved]
  - Serum serotonin increased [Not Recovered/Not Resolved]
  - Urinary tract infection [Not Recovered/Not Resolved]
  - Vertigo [Not Recovered/Not Resolved]
  - Arthralgia [Not Recovered/Not Resolved]
  - Chills [Not Recovered/Not Resolved]
  - Cholelithiasis [Not Recovered/Not Resolved]
  - Endometrial cancer stage I [Not Recovered/Not Resolved]
  - Hepatic pain [Not Recovered/Not Resolved]
  - Pain [Not Recovered/Not Resolved]
  - Poor quality sleep [Not Recovered/Not Resolved]
  - Renal failure [Not Recovered/Not Resolved]
  - Urine output decreased [Not Recovered/Not Resolved]
  - Blood pressure systolic decreased [Not Recovered/Not Resolved]
  - Carcinoid tumour [Not Recovered/Not Resolved]
  - Endometriosis [Not Recovered/Not Resolved]
  - Erythema [Not Recovered/Not Resolved]
  - Haemoglobin decreased [Not Recovered/Not Resolved]
  - Cough [Not Recovered/Not Resolved]
  - Crystal arthropathy [Not Recovered/Not Resolved]
  - Endometrial hyperplasia [Not Recovered/Not Resolved]
  - Gout [Not Recovered/Not Resolved]
  - Injection site mass [Not Recovered/Not Resolved]
  - Injection site pain [Not Recovered/Not Resolved]
  - Injection site reaction [Not Recovered/Not Resolved]
  - Joint stiffness [Not Recovered/Not Resolved]
  - Liver function test increased [Not Recovered/Not Resolved]
  - Procedural pain [Not Recovered/Not Resolved]
  - Rash pruritic [Not Recovered/Not Resolved]
  - Renal impairment [Not Recovered/Not Resolved]
  - Abdominal pain [Not Recovered/Not Resolved]
  - Blood pressure diastolic decreased [Not Recovered/Not Resolved]
  - Blood pressure increased [Not Recovered/Not Resolved]
  - Cellulitis [Not Recovered/Not Resolved]
  - Contusion [Not Recovered/Not Resolved]
  - Heart rate decreased [Not Recovered/Not Resolved]
  - Hypoaesthesia [Not Recovered/Not Resolved]
  - Injection site erythema [Not Recovered/Not Resolved]
  - Joint swelling [Not Recovered/Not Resolved]
  - Malignant neoplasm progression [Not Recovered/Not Resolved]
  - Metastases to fallopian tube [Not Recovered/Not Resolved]
  - Myalgia [Not Recovered/Not Resolved]
  - Nasopharyngitis [Not Recovered/Not Resolved]
  - Needle issue [Not Recovered/Not Resolved]
  - Neuralgia [Not Recovered/Not Resolved]
  - Vomiting [Not Recovered/Not Resolved]
  - White blood cell count increased [Not Recovered/Not Resolved]
